FAERS Safety Report 25332404 (Version 1)
Quarter: 2025Q2

REPORT INFORMATION
  Report Type: Spontaneous
  Country: DE (occurrence: DE)
  Receive Date: 20250519
  Receipt Date: 20250519
  Transmission Date: 20250716
  Serious: Yes (Other)
  Sender: SANDOZ
  Company Number: DE-002147023-NVSC2023DE125986

PATIENT
  Sex: Female

DRUGS (3)
  1. CIMZIA [Suspect]
     Active Substance: CERTOLIZUMAB PEGOL
     Indication: Rheumatoid arthritis
     Route: 065
     Dates: start: 2025
  2. METHOTREXATE [Suspect]
     Active Substance: METHOTREXATE
     Indication: Product used for unknown indication
     Route: 065
     Dates: start: 202210
  3. METHOTREXATE [Suspect]
     Active Substance: METHOTREXATE
     Route: 065

REACTIONS (5)
  - Rheumatoid arthritis [Not Recovered/Not Resolved]
  - Alopecia [Unknown]
  - Arthralgia [Recovering/Resolving]
  - Drug ineffective [Recovering/Resolving]
  - Therapeutic product effect incomplete [Unknown]
